FAERS Safety Report 8498623-6 (Version None)
Quarter: 2012Q3

REPORT INFORMATION
  Report Type: 
  Country: None (occurrence: None)
  Receive Date: 20120709
  Receipt Date: 20120628
  Transmission Date: 20120928
  Serious: No
  Sender: FDA-Public Use
  Company Number: US-AMGEN-USASP2012040211

PATIENT
  Sex: Female

DRUGS (3)
  1. ENBREL [Suspect]
     Indication: RHEUMATOID ARTHRITIS
     Dosage: UNK
     Dates: end: 20120401
  2. TREXALL [Concomitant]
     Dosage: UNK
  3. HUMIRA [Concomitant]
     Dosage: UNK

REACTIONS (2)
  - MOBILITY DECREASED [None]
  - DRUG INEFFECTIVE [None]
